FAERS Safety Report 6847716-5 (Version None)
Quarter: 2010Q3

REPORT INFORMATION
  Report Type: 
  Country: None (occurrence: None)
  Receive Date: 20100716
  Receipt Date: 20100708
  Transmission Date: 20110219
  Serious: Yes (Other)
  Sender: FDA-Public Use
  Company Number: PHHY2010BR32462

PATIENT
  Sex: Female

DRUGS (1)
  1. FORASEQ [Suspect]

REACTIONS (8)
  - BREAST CANCER [None]
  - BRONCHITIS CHRONIC [None]
  - DEVICE MALFUNCTION [None]
  - DYSPNOEA [None]
  - INJURY ASSOCIATED WITH DEVICE [None]
  - MALAISE [None]
  - METASTASES TO BONE [None]
  - TREATMENT NONCOMPLIANCE [None]
